FAERS Safety Report 10196671 (Version 2)
Quarter: 2014Q2

REPORT INFORMATION
  Report Type: Spontaneous
  Country: US (occurrence: US)
  Receive Date: 20140527
  Receipt Date: 20140613
  Transmission Date: 20141212
  Serious: Yes (Other)
  Sender: FDA-Public Use
  Company Number: US-PFIZER INC-2014139267

PATIENT
  Age: 67 Year
  Sex: Female
  Weight: 49.88 kg

DRUGS (5)
  1. ADVIL [Suspect]
     Indication: PAIN
     Dosage: 325 MG, DAILY
     Route: 048
     Dates: end: 201312
  2. ADVIL [Suspect]
     Indication: INFLAMMATION
  3. SYNTHROID [Concomitant]
     Dosage: 0.88 UG, DAILY
  4. CALCIUM [Concomitant]
     Dosage: 1000 MG, DAILY
  5. CENTRUM [Concomitant]
     Dosage: UNK

REACTIONS (3)
  - Loss of consciousness [Unknown]
  - Tremor [Unknown]
  - Dizziness [Unknown]
